FAERS Safety Report 4435893-5 (Version None)
Quarter: 2004Q3

REPORT INFORMATION
  Report Type: 
  Country: None (occurrence: None)
  Receive Date: 20040726
  Receipt Date: 20040329
  Transmission Date: 20050211
  Serious: No
  Sender: FDA-Public Use
  Company Number: USA040360709

PATIENT
  Age: 67 Year
  Sex: Female
  Weight: 62 kg

DRUGS (9)
  1. FORTEO [Suspect]
     Indication: OSTEOPOROSIS
     Dates: start: 20040302, end: 20040303
  2. ATROVENT [Concomitant]
  3. PULMICORT (BUDENOSIDE) [Concomitant]
  4. DIFLUCAN [Concomitant]
  5. HUMABID (GUAIFENESIN) [Concomitant]
  6. THEO-DUR [Concomitant]
  7. NYSTATIN [Concomitant]
  8. ASPIRIN [Concomitant]
  9. OSCAL 500-D [Concomitant]

REACTIONS (5)
  - BURNING SENSATION [None]
  - DIZZINESS [None]
  - NAUSEA [None]
  - TREMOR [None]
  - VOMITING [None]
